FAERS Safety Report 16595870 (Version 3)
Quarter: 2019Q3

REPORT INFORMATION
  Report Type: Report from Study
  Country: None (occurrence: US)
  Receive Date: 20190719
  Receipt Date: 20190826
  Transmission Date: 20191004
  Serious: Yes (Hospitalization, Other)
  Sender: FDA-Public Use
  Company Number: US-ABBVIE-19K-163-2856384-00

PATIENT
  Age: 37 Year
  Sex: Male

DRUGS (3)
  1. HUMIRA [Suspect]
     Active Substance: ADALIMUMAB
     Dosage: DAY 15
     Route: 058
     Dates: start: 20190716
  2. HUMIRA [Suspect]
     Active Substance: ADALIMUMAB
     Indication: CROHN^S DISEASE
     Dosage: DAY 1
     Route: 058
     Dates: start: 20190616, end: 20190616
  3. HUMIRA [Suspect]
     Active Substance: ADALIMUMAB
     Dosage: DAY 15
     Route: 058
     Dates: start: 20190630, end: 20190630

REACTIONS (9)
  - Weight decreased [Not Recovered/Not Resolved]
  - Pain [Recovering/Resolving]
  - Night sweats [Recovering/Resolving]
  - Drug ineffective [Unknown]
  - Pyrexia [Recovering/Resolving]
  - Diarrhoea haemorrhagic [Recovered/Resolved]
  - Depressed mood [Unknown]
  - Diarrhoea [Not Recovered/Not Resolved]
  - Gastrointestinal disorder [Recovering/Resolving]

NARRATIVE: CASE EVENT DATE: 2019
